FAERS Safety Report 7084911-7 (Version None)
Quarter: 2010Q4

REPORT INFORMATION
  Report Type: 
  Country: None (occurrence: None)
  Receive Date: 20101025
  Receipt Date: 20101013
  Transmission Date: 20110411
  Serious: Yes (Hospitalization)
  Sender: FDA-Public Use
  Company Number: DSM-2010-01401

PATIENT
  Age: 53 Year
  Sex: Male
  Weight: 145 kg

DRUGS (10)
  1. OLMETEC (OLEMESARTAN MEDOXOMIL) (40 MILLIGRAM, TABLET) (OLMESARTAN MED [Suspect]
     Indication: HYPERTENSION
     Dosage: 40 MG (40 MG, 1 IN 1 D), ORAL
     Route: 048
     Dates: end: 20100423
  2. ALDALIX (SPIRONOLACTONE FUROSEMIDE) (CAPSULE) (SPIRONACTONE, FUROSEMID [Suspect]
     Indication: HYPERTENSION
     Dosage: 50/20 MG (1 IN 1 D), ORAL
     Route: 048
     Dates: end: 20100423
  3. COLCHIMAX (COLCHICINE, DICYCLOVERINE HYDROCHLORIDE) (TABLET) (COLCHICI [Suspect]
     Indication: PRODUCT USED FOR UNKNOWN INDICATION
     Dosage: 1 DOSAGE FORMS)1 DOSAGE FORMS, 1 IN 1 D), ORAL, 2 MG (1 DOSAGE FORMS, 2 IN 1 D), ORAL
     Route: 048
     Dates: end: 20100412
  4. COLCHIMAX (COLCHICINE, DICYCLOVERINE HYDROCHLORIDE) (TABLET) (COLCHICI [Suspect]
     Indication: PRODUCT USED FOR UNKNOWN INDICATION
     Dosage: 1 DOSAGE FORMS)1 DOSAGE FORMS, 1 IN 1 D), ORAL, 2 MG (1 DOSAGE FORMS, 2 IN 1 D), ORAL
     Route: 048
     Dates: end: 20100422
  5. ASPEGIC (ACETYLSALICYLIC ACID) (ACETYLSALICYLIC ACID) [Suspect]
     Indication: PRODUCT USED FOR UNKNOWN INDICATION
     Dosage: 300 MG (300 MG, 1 IN 1 D), ORAL
     Route: 048
     Dates: end: 20100423
  6. GLUCOPHAGE [Suspect]
     Indication: DIABETES MELLITUS
     Dosage: 3000 MG (1000 MG, 3 IN 1 D), ORAL
     Route: 048
     Dates: end: 20100423
  7. FUROSEMIDE [Suspect]
     Indication: HYPERTENSION
     Dosage: 1 DOSAGE FORMS (1 DOSGAE FORMS, 1 IN 1 D), ORAL
     Route: 048
     Dates: end: 20100427
  8. VOLTAREN [Suspect]
     Indication: PAIN
     Dosage: 150/6 MG/ML (2 IN 1 D), INTRAMUSCULAR
     Route: 030
     Dates: start: 20100415, end: 20100422
  9. HUMALOG (INSULIN) (INSULIN) [Concomitant]
  10. LANTUS (INSULIN GLARGINE) (INSULIN GLARGINE) [Concomitant]

REACTIONS (9)
  - ANAEMIA [None]
  - BLOOD POTASSIUM INCREASED [None]
  - DIALYSIS [None]
  - DIARRHOEA [None]
  - GAIT DISTURBANCE [None]
  - HYPOAESTHESIA [None]
  - NEUROPATHY PERIPHERAL [None]
  - RENAL FAILURE ACUTE [None]
  - VOMITING [None]
